FAERS Safety Report 12471237 (Version 1)
Quarter: 2016Q2

REPORT INFORMATION
  Report Type: Spontaneous
  Country: US (occurrence: US)
  Receive Date: 20160616
  Receipt Date: 20160616
  Transmission Date: 20160815
  Serious: No
  Sender: FDA-Public Use
  Company Number: US-PFIZER INC-2016275236

PATIENT
  Sex: Female

DRUGS (2)
  1. CHILDRENS ADVIL [Suspect]
     Active Substance: IBUPROFEN
  2. GLUTEN [Suspect]
     Active Substance: WHEAT GLUTEN

REACTIONS (2)
  - Reaction to drug excipients [Unknown]
  - Gluten sensitivity [Unknown]
